FAERS Safety Report 22889359 (Version 4)
Quarter: 2025Q2

REPORT INFORMATION
  Report Type: Spontaneous
  Country: CA (occurrence: CA)
  Receive Date: 20230831
  Receipt Date: 20250408
  Transmission Date: 20250717
  Serious: Yes (Hospitalization, Other)
  Sender: PFIZER
  Company Number: CA-PFIZER INC-202300285504

PATIENT
  Age: 66 Year
  Sex: Male

DRUGS (13)
  1. VYNDAMAX [Suspect]
     Active Substance: TAFAMIDIS
     Indication: Cardiac amyloidosis
     Dosage: 61 MG, 1X/DAY
     Route: 048
     Dates: start: 20230510
  2. APIXABAN [Concomitant]
     Active Substance: APIXABAN
     Dosage: 5 MG, 2X/DAY
     Route: 048
  3. BISOPROLOL [Concomitant]
     Active Substance: BISOPROLOL
     Dosage: 2.5 MG, 1X/DAY
     Route: 048
  4. SPIRONOLACTONE [Concomitant]
     Active Substance: SPIRONOLACTONE
     Dosage: 25 MG, 1X/DAY
     Route: 048
  5. SPIRONOLACTONE [Concomitant]
     Active Substance: SPIRONOLACTONE
     Dosage: 12.5 MG, 1X/DAY
     Route: 048
  6. LASIX [Concomitant]
     Active Substance: FUROSEMIDE
     Dosage: 40 MG, 2X/DAY
     Route: 048
  7. LASIX [Concomitant]
     Active Substance: FUROSEMIDE
     Dosage: 40 MG, 1X/DAY
     Route: 048
  8. LASIX [Concomitant]
     Active Substance: FUROSEMIDE
     Dosage: 20 MG, 1X/DAY ( TITRATING DOSE)
     Route: 048
  9. ROSUVASTATIN [Concomitant]
     Active Substance: ROSUVASTATIN
     Dosage: 20 MG, 1X/DAY
     Route: 048
  10. CETIRIZINE HYDROCHLORIDE [Concomitant]
     Active Substance: CETIRIZINE HYDROCHLORIDE
  11. SPIRIVA RESPIMAT [Concomitant]
     Active Substance: TIOTROPIUM BROMIDE
  12. ALBUTEROL SULFATE [Concomitant]
     Active Substance: ALBUTEROL SULFATE
  13. ZENHALE [Concomitant]
     Active Substance: FORMOTEROL FUMARATE\MOMETASONE FUROATE

REACTIONS (18)
  - Cardiac failure congestive [Recovering/Resolving]
  - COVID-19 pneumonia [Recovering/Resolving]
  - Urosepsis [Recovered/Resolved]
  - Pneumonia [Recovered/Resolved]
  - Pulmonary hypertension [Unknown]
  - Atrial fibrillation [Unknown]
  - Aortic aneurysm [Unknown]
  - Biliary dilatation [Unknown]
  - Arthralgia [Not Recovered/Not Resolved]
  - Electrocardiogram T wave abnormal [Unknown]
  - Bundle branch block right [Unknown]
  - Fluid retention [Recovering/Resolving]
  - Oedema peripheral [Unknown]
  - Obstructive airways disorder [Unknown]
  - Blood culture positive [Unknown]
  - Right ventricular hypertrophy [Unknown]
  - Dilatation atrial [Unknown]
  - Polyuria [Unknown]

NARRATIVE: CASE EVENT DATE: 20230801
